FAERS Safety Report 12563165 (Version 3)
Quarter: 2016Q3

REPORT INFORMATION
  Report Type: Spontaneous
  Country: CA (occurrence: CA)
  Receive Date: 20160715
  Receipt Date: 20160902
  Transmission Date: 20161109
  Serious: Yes (Death, Other)
  Sender: FDA-Public Use
  Company Number: CA-SA-2016SA128539

PATIENT
  Age: 57 Year
  Sex: Female

DRUGS (1)
  1. AUBAGIO [Suspect]
     Active Substance: TERIFLUNOMIDE
     Indication: RELAPSING-REMITTING MULTIPLE SCLEROSIS
     Route: 065

REACTIONS (7)
  - Seizure [Unknown]
  - Cardiac arrest [Unknown]
  - Loss of consciousness [Unknown]
  - Ejection fraction decreased [Unknown]
  - Death [Fatal]
  - Dyspnoea [Unknown]
  - Nausea [Unknown]
